FAERS Safety Report 21470636 (Version 1)
Quarter: 2022Q4

REPORT INFORMATION
  Report Type: Report from Study
  Country: US (occurrence: US)
  Receive Date: 20221018
  Receipt Date: 20221018
  Transmission Date: 20230112
  Serious: No
  Sender: FDA-Public Use
  Company Number: US-ABBVIE-4156688

PATIENT
  Sex: Female
  Weight: 79.378 kg

DRUGS (7)
  1. SKYRIZI [Suspect]
     Active Substance: RISANKIZUMAB-RZAA
     Indication: Psoriatic arthropathy
     Dosage: WEEK 0 AND WEEK 4
     Route: 058
     Dates: start: 20220812
  2. TYLENOL 325 MG TABLET [Concomitant]
     Indication: Product used for unknown indication
  3. VITAMIN D3 50 MCG (2,000 UNIT) [Concomitant]
     Indication: Product used for unknown indication
     Dosage: 50 MCG (2,000 UNIT)
  4. SERTRALINE HYDROCHLORIDE [Concomitant]
     Active Substance: SERTRALINE HYDROCHLORIDE
     Indication: Product used for unknown indication
  5. LIPITOR 10 MG TABLET [Concomitant]
     Indication: Product used for unknown indication
  6. CLOBETASOL EMOLLIENT [Concomitant]
     Indication: Product used for unknown indication
  7. ALPRAZOLAM [Concomitant]
     Active Substance: ALPRAZOLAM
     Indication: Product used for unknown indication

REACTIONS (3)
  - Bone pain [Unknown]
  - Pain [Unknown]
  - Musculoskeletal stiffness [Unknown]

NARRATIVE: CASE EVENT DATE: 20220101
